FAERS Safety Report 7545500-0 (Version None)
Quarter: 2011Q2

REPORT INFORMATION
  Report Type: 
  Country: None (occurrence: None)
  Receive Date: 20110525
  Receipt Date: 20110215
  Transmission Date: 20111010
  Serious: No
  Sender: FDA-Public Use
  Company Number: 323565

PATIENT
  Age: 66 Year
  Sex: Female

DRUGS (2)
  1. VICTOZA [Suspect]
     Indication: TYPE 2 DIABETES MELLITUS
     Dosage: 0.6 MG, QD,SUBCUTANEOUS ; 1.8 MG, QD, SUBCUTANEOUS
     Route: 058
     Dates: end: 20110203
  2. VICTOZA [Suspect]
     Indication: TYPE 2 DIABETES MELLITUS
     Dosage: 0.6 MG, QD,SUBCUTANEOUS ; 1.8 MG, QD, SUBCUTANEOUS
     Route: 058
     Dates: start: 20110117

REACTIONS (3)
  - VOMITING [None]
  - ABDOMINAL DISTENSION [None]
  - ABDOMINAL PAIN UPPER [None]
